FAERS Safety Report 19461368 (Version 1)
Quarter: 2021Q2

REPORT INFORMATION
  Report Type: Spontaneous
  Country: US (occurrence: US)
  Receive Date: 20210625
  Receipt Date: 20210625
  Transmission Date: 20210717
  Serious: No
  Sender: FDA-Public Use
  Company Number: US-PFIZER INC-2021438610

PATIENT
  Age: 58 Year
  Sex: Female
  Weight: 124.74 kg

DRUGS (2)
  1. CHANTIX [Suspect]
     Active Substance: VARENICLINE TARTRATE
     Indication: SMOKING CESSATION THERAPY
     Dosage: UNK
     Dates: start: 2018
  2. CHANTIX [Suspect]
     Active Substance: VARENICLINE TARTRATE
     Dosage: 1 MG, 2X/DAY
     Dates: end: 202104

REACTIONS (7)
  - Illness [Unknown]
  - Poor quality sleep [Unknown]
  - Abnormal dreams [Recovered/Resolved]
  - Cough [Unknown]
  - Product dose omission issue [Unknown]
  - Urinary tract infection [Unknown]
  - Sleep apnoea syndrome [Unknown]

NARRATIVE: CASE EVENT DATE: 202010
